FAERS Safety Report 4567378-X (Version None)
Quarter: 2005Q1

REPORT INFORMATION
  Report Type: 
  Country: None (occurrence: None)
  Receive Date: 20050127
  Receipt Date: 20050118
  Transmission Date: 20050727
  Serious: Yes (Life-Threatening)
  Sender: FDA-Public Use
  Company Number: 105838ISR

PATIENT
  Age: 66 Year
  Sex: Male

DRUGS (6)
  1. VINCRISTINE [Suspect]
     Indication: LYMPHOMA
     Dosage: 2 MILIGRAM INTRAVENOUS (NOS)
     Route: 042
     Dates: start: 20030524, end: 20030911
  2. DOXORUBICIN HCL [Suspect]
     Indication: LYMPHOMA
     Dosage: 50 MG/M2, INTRAVENOUS (NOS)
     Route: 042
     Dates: start: 20030524, end: 20031022
  3. PREDNISONE [Suspect]
     Indication: DERMATOMYOSITIS
     Dosage: 80 MILLIGRAM, ORAL
     Route: 048
  4. CYCLOPHOSPHAMIDE [Suspect]
     Indication: LYMPHOMA
     Dosage: 750 MG/M2, INTRAVENOUS (NOS)
     Route: 042
     Dates: start: 20030524, end: 20031022
  5. ETOPOSIDE [Suspect]
     Indication: LYMPHOMA
     Dosage: 300 MILLIGRAM, INTRAVENOUS (NOS)
     Route: 042
     Dates: start: 20031001, end: 20031022
  6. MABTHERA (RITUXIMAB) [Suspect]
     Dosage: 375 MG/M2
     Dates: start: 20030524, end: 20031022

REACTIONS (5)
  - HAEMATURIA [None]
  - METASTASES TO BONE [None]
  - PARAESTHESIA [None]
  - POLLAKIURIA [None]
  - PROSTATE CANCER [None]
